FAERS Safety Report 5120109-7 (Version None)
Quarter: 2006Q4

REPORT INFORMATION
  Report Type: 
  Country: None (occurrence: None)
  Receive Date: 20061002
  Receipt Date: 20061002
  Transmission Date: 20070319
  Serious: Yes (Other)
  Sender: FDA-Public Use
  Company Number: None

PATIENT
  Sex: Female
  Weight: 70.3075 kg

DRUGS (2)
  1. LEVAQUIN [Suspect]
     Indication: PROPHYLAXIS
     Dosage: 750 MG 1 DAILY FOR 5 DAYS PO
     Route: 048
     Dates: start: 20060925, end: 20060929
  2. LEVAQUIN [Suspect]
     Indication: TETANUS
     Dosage: 750 MG 1 DAILY FOR 5 DAYS PO
     Route: 048
     Dates: start: 20060925, end: 20060929

REACTIONS (13)
  - ARTHRALGIA [None]
  - BACK PAIN [None]
  - BURNING SENSATION [None]
  - CHEST PAIN [None]
  - CONSTIPATION [None]
  - FATIGUE [None]
  - HEADACHE [None]
  - INSOMNIA [None]
  - MUSCULOSKELETAL PAIN [None]
  - NAUSEA [None]
  - PAIN IN EXTREMITY [None]
  - SINUSITIS [None]
  - VISION BLURRED [None]
